FAERS Safety Report 16752202 (Version 2)
Quarter: 2020Q1

REPORT INFORMATION
  Report Type: Report from Study
  Country: UG (occurrence: UG)
  Receive Date: 20190828
  Receipt Date: 20200323
  Transmission Date: 20200409
  Serious: Yes (Congenital Anomaly, Other)
  Sender: FDA-Public Use
  Company Number: UG-VIIV HEALTHCARE LIMITED-UG2018GSK210646

PATIENT
  Sex: Male

DRUGS (2)
  1. LAMIVUDINE + TENOFOVIR DISOPROXIL FUMARATE [Concomitant]
     Active Substance: LAMIVUDINE\TENOFOVIR DISOPROXIL FUMARATE
     Indication: HIV INFECTION
     Dosage: UNK
     Route: 064
     Dates: start: 20180711, end: 20181006
  2. DOLUTEGRAVIR [Suspect]
     Active Substance: DOLUTEGRAVIR
     Indication: HIV INFECTION
     Dosage: 50 MG, QD
     Route: 064
     Dates: start: 20180711, end: 20181006

REACTIONS (2)
  - Birth mark [Recovered/Resolved]
  - Congenital umbilical hernia [Not Recovered/Not Resolved]

NARRATIVE: CASE EVENT DATE: 20181006
